FAERS Safety Report 8183917-4 (Version None)
Quarter: 2012Q1

REPORT INFORMATION
  Report Type: 
  Country: None (occurrence: None)
  Receive Date: 20120203
  Receipt Date: 20111109
  Transmission Date: 20120608
  Serious: No
  Sender: FDA-Public Use
  Company Number: 2011000209

PATIENT
  Age: 50 Year
  Sex: Female

DRUGS (1)
  1. ULESFIA [Suspect]
     Indication: LICE INFESTATION
     Dosage: 1/2 BOTTLE WITH EACH APPLICATION
     Dates: start: 20111030, end: 20111102

REACTIONS (3)
  - MEDICATION ERROR [None]
  - EYE INFECTION [None]
  - DRUG INEFFECTIVE [None]
